FAERS Safety Report 7349650-3 (Version None)
Quarter: 2011Q1

REPORT INFORMATION
  Report Type: 
  Country: None (occurrence: None)
  Receive Date: 20110314
  Receipt Date: 20101230
  Transmission Date: 20110831
  Serious: Yes (Hospitalization)
  Sender: FDA-Public Use
  Company Number: A0902045A

PATIENT
  Age: 75 Year
  Sex: Female

DRUGS (5)
  1. STALEVO 100 [Concomitant]
  2. GALANTAMINE HYDROBROMIDE [Concomitant]
  3. AMANTADINE HCL [Concomitant]
  4. AUGMENTIN '125' [Suspect]
     Route: 048
     Dates: start: 20100701
  5. REQUIP [Concomitant]

REACTIONS (1)
  - RASH [None]
